FAERS Safety Report 7126407-X (Version None)
Quarter: 2010Q4

REPORT INFORMATION
  Report Type: 
  Country: None (occurrence: None)
  Receive Date: 20101129
  Receipt Date: 20101118
  Transmission Date: 20110411
  Serious: Yes (Hospitalization)
  Sender: FDA-Public Use
  Company Number: IT-BAXTER-2010BH028549

PATIENT
  Age: 68 Year
  Sex: Female

DRUGS (8)
  1. CYCLOPHOSPHAMIDE [Suspect]
     Indication: BREAST CANCER STAGE IV
     Route: 041
     Dates: start: 20100823, end: 20101004
  2. MYOCET [Suspect]
     Indication: BREAST CANCER STAGE IV
     Route: 041
     Dates: start: 20100823, end: 20101004
  3. DEXTROMETHORPHAN HYDROBROMIDE [Concomitant]
     Indication: COUGH
     Route: 048
     Dates: start: 20101005, end: 20101020
  4. CLENIL [Concomitant]
     Indication: PRODUCT USED FOR UNKNOWN INDICATION
     Route: 055
     Dates: start: 20101005, end: 20101020
  5. INDERAL [Concomitant]
     Indication: PRODUCT USED FOR UNKNOWN INDICATION
     Route: 048
     Dates: start: 20081019, end: 20101019
  6. KANRENOL [Concomitant]
     Indication: PRODUCT USED FOR UNKNOWN INDICATION
     Route: 048
     Dates: start: 20081019, end: 20101019
  7. AMINOTROFIC [Concomitant]
     Indication: PRODUCT USED FOR UNKNOWN INDICATION
     Route: 048
     Dates: start: 20101001, end: 20101020
  8. INDERAL [Concomitant]
     Route: 048
     Dates: start: 20080901

REACTIONS (4)
  - CARDIAC FAILURE [None]
  - HYPERTENSIVE CRISIS [None]
  - MITRAL VALVE DISEASE [None]
  - PULMONARY OEDEMA [None]
